FAERS Safety Report 6725593-0 (Version None)
Quarter: 2010Q2

REPORT INFORMATION
  Report Type: 
  Country: None (occurrence: None)
  Receive Date: 20100514
  Receipt Date: 20100507
  Transmission Date: 20101027
  Serious: Yes (Hospitalization)
  Sender: FDA-Public Use
  Company Number: JP-ROCHE-693577

PATIENT
  Sex: Female
  Weight: 58 kg

DRUGS (9)
  1. XELODA [Suspect]
     Indication: COLON CANCER METASTATIC
     Route: 048
     Dates: start: 20080822, end: 20081101
  2. XELODA [Suspect]
     Route: 048
     Dates: start: 20081119, end: 20090520
  3. MUCOSTA [Suspect]
     Indication: GASTRITIS
     Route: 048
     Dates: start: 20080507, end: 20090520
  4. MARZULENE-S [Suspect]
     Indication: GASTRITIS
     Route: 048
     Dates: start: 20080507, end: 20090520
  5. OPALMON [Suspect]
     Indication: THROMBOANGIITIS OBLITERANS
     Route: 048
     Dates: start: 20080523, end: 20090520
  6. URSO 250 [Suspect]
     Indication: CHOLELITHIASIS
     Route: 048
     Dates: start: 20081126, end: 20090520
  7. LENDORMIN [Suspect]
     Indication: INSOMNIA
     Route: 048
     Dates: start: 20080725
  8. PL [Suspect]
     Indication: UPPER RESPIRATORY TRACT INFLAMMATION
     Dosage: DOSE FORM: GRANULATED POWDER,DRUG NAMEPL(NON-PYRINE COLD PREPARATION)
     Route: 048
     Dates: start: 20090422, end: 20090507
  9. PYDOXAL [Concomitant]
     Route: 048
     Dates: start: 20080822, end: 20090520

REACTIONS (2)
  - GASTROENTERITIS EOSINOPHILIC [None]
  - UPPER RESPIRATORY TRACT INFLAMMATION [None]
